FAERS Safety Report 13626399 (Version 1)
Quarter: 2017Q2

REPORT INFORMATION
  Report Type: Spontaneous
  Country: US (occurrence: US)
  Receive Date: 20170607
  Receipt Date: 20170607
  Transmission Date: 20170830
  Serious: No
  Sender: FDA-Public Use
  Company Number: None

PATIENT
  Age: 49 Year
  Sex: Female
  Weight: 85.5 kg

DRUGS (8)
  1. NATURE-THROID [Concomitant]
     Active Substance: THYROID, PORCINE
  2. MELOXICAM. [Concomitant]
     Active Substance: MELOXICAM
  3. CHLOR-TRIMETON [Suspect]
     Active Substance: CHLORPHENIRAMINE MALEATE
  4. MAGNESIUM [Concomitant]
     Active Substance: MAGNESIUM
  5. ROBAXIN [Concomitant]
     Active Substance: METHOCARBAMOL
  6. TYLENOL [Concomitant]
     Active Substance: ACETAMINOPHEN
  7. XIIDRA [Suspect]
     Active Substance: LIFITEGRAST
     Indication: DRY EYE
     Route: 047
     Dates: start: 20170531, end: 20170607
  8. VITAMIN D [Concomitant]
     Active Substance: CHOLECALCIFEROL

REACTIONS (10)
  - Dysgeusia [None]
  - Upper-airway cough syndrome [None]
  - Product packaging issue [None]
  - Product container issue [None]
  - Eyelid irritation [None]
  - Dry eye [None]
  - Throat irritation [None]
  - Instillation site pain [None]
  - Eye irritation [None]
  - Cough [None]

NARRATIVE: CASE EVENT DATE: 20170607
